FAERS Safety Report 10023834 (Version 1)
Quarter: 2014Q1

REPORT INFORMATION
  Report Type: Spontaneous
  Country: US (occurrence: None)
  Receive Date: 20140318
  Receipt Date: 20140318
  Transmission Date: 20141002
  Serious: Yes (Other)
  Sender: FDA-Public Use
  Company Number: 2014-US-002965

PATIENT
  Age: 27 Year
  Sex: Male

DRUGS (2)
  1. XYREM [Suspect]
     Indication: NARCOLEPSY
     Route: 048
     Dates: start: 201005
  2. RITALIN [Suspect]
     Indication: PRODUCT USED FOR UNKNOWN INDICATION

REACTIONS (2)
  - Loss of consciousness [None]
  - Drug ineffective [None]
